FAERS Safety Report 17519777 (Version 1)
Quarter: 2020Q1

REPORT INFORMATION
  Report Type: Spontaneous
  Country: US (occurrence: US)
  Receive Date: 20200310
  Receipt Date: 20200310
  Transmission Date: 20200409
  Serious: Yes (Hospitalization)
  Sender: FDA-Public Use
  Company Number: US-NOVOPROD-716211

PATIENT
  Age: 52 Year
  Sex: Female
  Weight: 71.67 kg

DRUGS (2)
  1. TRESIBA [Suspect]
     Active Substance: INSULIN DEGLUDEC
     Indication: TYPE 1 DIABETES MELLITUS
     Dosage: 22 IU, QD ( IN PM)
     Route: 058
     Dates: start: 201910
  2. FIASP [Suspect]
     Active Substance: INSULIN ASPART
     Indication: TYPE 1 DIABETES MELLITUS
     Dosage: SLIDING SCALE
     Route: 058

REACTIONS (7)
  - Pneumonia aspiration [Unknown]
  - Asthenia [Not Recovered/Not Resolved]
  - Mitral valve incompetence [Unknown]
  - Visual impairment [Unknown]
  - Weight decreased [Unknown]
  - Tricuspid valve incompetence [Unknown]
  - Condition aggravated [Unknown]

NARRATIVE: CASE EVENT DATE: 201911
